FAERS Safety Report 21178253 (Version 1)
Quarter: 2022Q3

REPORT INFORMATION
  Report Type: Spontaneous
  Country: IN (occurrence: IN)
  Receive Date: 20220805
  Receipt Date: 20220805
  Transmission Date: 20221027
  Serious: Yes (Life-Threatening, Other)
  Sender: FDA-Public Use
  Company Number: IN-PFIZER INC-202201029923

PATIENT
  Age: 66 Year
  Sex: Male

DRUGS (3)
  1. LORAZEPAM [Suspect]
     Active Substance: LORAZEPAM
     Indication: Parkinsonism
     Dosage: 6 MG, 1X/DAY
     Dates: start: 202001
  2. MEMANTINE [Suspect]
     Active Substance: MEMANTINE
     Indication: Parkinsonism
     Dosage: INCREASED, 30 MG, 1X/DAY
     Dates: start: 202001
  3. RIVASTIGMINE [Suspect]
     Active Substance: RIVASTIGMINE
     Indication: Parkinsonism
     Dosage: 3 MG, 1X/DAY
     Dates: start: 202001

REACTIONS (1)
  - Drug ineffective [Unknown]

NARRATIVE: CASE EVENT DATE: 20200101
